FAERS Safety Report 4872989-8 (Version None)
Quarter: 2006Q1

REPORT INFORMATION
  Report Type: 
  Country: None (occurrence: None)
  Receive Date: 20060105
  Receipt Date: 20051229
  Transmission Date: 20060701
  Serious: Yes (Other)
  Sender: FDA-Public Use
  Company Number: 2005UW19520

PATIENT
  Sex: Female

DRUGS (1)
  1. NEXIUM [Suspect]
     Route: 048
     Dates: start: 20030101

REACTIONS (3)
  - ABDOMINAL DISCOMFORT [None]
  - LYMPHOMA [None]
  - WEIGHT DECREASED [None]
